FAERS Safety Report 7476641-4 (Version None)
Quarter: 2011Q2

REPORT INFORMATION
  Report Type: 
  Country: None (occurrence: None)
  Receive Date: 20110510
  Receipt Date: 20110510
  Transmission Date: 20111010
  Serious: Yes (Life-Threatening)
  Sender: FDA-Public Use
  Company Number: None

PATIENT
  Age: 4 Year
  Sex: Female
  Weight: 15.4223 kg

DRUGS (2)
  1. CHILDREN'S CETIRIZINE HYDROCHLORIDE ALLERGY [Suspect]
     Indication: SEASONAL ALLERGY
     Dosage: 1/2 TEASPOON DAILY PO
     Route: 048
     Dates: start: 20110427, end: 20110427
  2. CHILDREN'S CETIRIZINE HYDROCHLORIDE ALLERGY [Suspect]
     Indication: SEASONAL ALLERGY
     Dosage: 1/2 TEASPOON DAILY PO
     Route: 048
     Dates: start: 20110425, end: 20110425

REACTIONS (5)
  - SUICIDAL IDEATION [None]
  - OBSESSIVE-COMPULSIVE DISORDER [None]
  - THINKING ABNORMAL [None]
  - CONVERSION DISORDER [None]
  - CRYING [None]
